FAERS Safety Report 22308129 (Version 1)
Quarter: 2023Q2

REPORT INFORMATION
  Report Type: Spontaneous
  Country: US (occurrence: None)
  Receive Date: 20230510
  Receipt Date: 20230510
  Transmission Date: 20230721
  Serious: Yes (Hospitalization)
  Sender: FDA-Public Use
  Company Number: None

PATIENT
  Sex: Male

DRUGS (1)
  1. ADVATE [Suspect]
     Active Substance: ANTIHEMOPHILIC FACTOR, HUMAN RECOMBINANT
     Indication: Factor VIII deficiency
     Dosage: 3300 UNITS?? FREQUENCY: 3 TIMES A WEEK FOR PROPHYLAXIS AND AS DIRECTED FOR BLEED TREATMENT.
     Route: 042
     Dates: start: 202304

REACTIONS (1)
  - Nephrolithiasis [None]
